FAERS Safety Report 24304134 (Version 5)
Quarter: 2025Q1

REPORT INFORMATION
  Report Type: Spontaneous
  Country: US (occurrence: US)
  Receive Date: 20240910
  Receipt Date: 20250321
  Transmission Date: 20250409
  Serious: Yes (Other)
  Sender: CSL BEHRING
  Company Number: US-BEH-2024178303

PATIENT
  Age: 68 Year
  Sex: Male
  Weight: 99.773 kg

DRUGS (3)
  1. HIZENTRA [Suspect]
     Active Substance: HUMAN IMMUNOGLOBULIN G
     Indication: Immunodeficiency common variable
     Dosage: UNK, QW,16-20 GRAMS
     Route: 065
  2. HIZENTRA [Suspect]
     Active Substance: HUMAN IMMUNOGLOBULIN G
     Indication: Congenital hypogammaglobulinaemia
     Route: 058
     Dates: start: 2024, end: 202407
  3. HIZENTRA [Suspect]
     Active Substance: HUMAN IMMUNOGLOBULIN G
     Dosage: UNK, QW (PRODUCT STRENGTH: 20 GRAMS)
     Route: 058
     Dates: start: 202406, end: 202408

REACTIONS (9)
  - Headache [Unknown]
  - Joint swelling [Unknown]
  - Musculoskeletal stiffness [Unknown]
  - Pain [Unknown]
  - Incorrect drug administration rate [Unknown]
  - Arthritis [Unknown]
  - Therapy change [Unknown]
  - Dehydration [Unknown]
  - Fall [Unknown]

NARRATIVE: CASE EVENT DATE: 20240601
